FAERS Safety Report 4928048-9 (Version None)
Quarter: 2006Q1

REPORT INFORMATION
  Report Type: 
  Country: None (occurrence: None)
  Receive Date: 20060228
  Receipt Date: 20030929
  Transmission Date: 20060701
  Serious: Yes (Hospitalization)
  Sender: FDA-Public Use
  Company Number: DE-BOEHRINGER INGELHEIM PHARMACEUTICALS, INC.-2003-DE-04543DE

PATIENT
  Sex: Male
  Weight: 97.6 kg

DRUGS (3)
  1. MICARDIS [Suspect]
     Indication: DIABETIC NEPHROPATHY
     Route: 048
  2. MICARDIS [Suspect]
     Indication: HYPERTENSION
     Route: 048
     Dates: start: 20030911
  3. RIFUN [Concomitant]
     Indication: GASTRITIS
     Route: 048
     Dates: start: 20030911

REACTIONS (4)
  - PNEUMONIA [None]
  - PULMONARY OEDEMA [None]
  - RENAL FAILURE ACUTE [None]
  - RHABDOMYOLYSIS [None]
